FAERS Safety Report 15172711 (Version 1)
Quarter: 2018Q3

REPORT INFORMATION
  Report Type: Spontaneous
  Country: JP (occurrence: JP)
  Receive Date: 20180720
  Receipt Date: 20180720
  Transmission Date: 20181010
  Serious: Yes (Hospitalization)
  Sender: FDA-Public Use
  Company Number: JP-JNJFOC-20180722700

PATIENT
  Age: 76 Year
  Sex: Female
  Weight: 42 kg

DRUGS (11)
  1. REMICADE [Suspect]
     Active Substance: INFLIXIMAB
     Indication: RHEUMATOID ARTHRITIS
     Dosage: DOSES ON 01?MAR?2018, 30?MAR?2018, 10?JUL?2018
     Route: 042
     Dates: start: 20180215, end: 20180301
  2. METHOTREXATE. [Concomitant]
     Active Substance: METHOTREXATE
     Indication: RHEUMATOID ARTHRITIS
     Route: 048
  3. MOHRUS [Concomitant]
     Active Substance: KETOPROFEN
     Indication: RHEUMATOID ARTHRITIS
     Route: 061
  4. ALOSENN [Concomitant]
     Active Substance: SENNA LEAF
     Indication: CONSTIPATION
     Route: 048
  5. CELECOX [Concomitant]
     Active Substance: CELECOXIB
     Indication: RHEUMATOID ARTHRITIS
     Route: 048
  6. SUMILU [Concomitant]
     Active Substance: FELBINAC
     Indication: RHEUMATOID ARTHRITIS
     Route: 061
  7. REMICADE [Suspect]
     Active Substance: INFLIXIMAB
     Indication: RHEUMATOID ARTHRITIS
     Route: 042
     Dates: end: 20180129
  8. FOLIAMIN [Concomitant]
     Active Substance: FOLIC ACID
     Indication: RHEUMATOID ARTHRITIS
     Route: 048
  9. REBAMIPIDE [Concomitant]
     Active Substance: REBAMIPIDE
     Indication: PROPHYLAXIS AGAINST GASTROINTESTINAL ULCER
     Route: 048
  10. FAMOTIDINE. [Concomitant]
     Active Substance: FAMOTIDINE
     Indication: PROPHYLAXIS AGAINST GASTROINTESTINAL ULCER
     Route: 048
  11. TEARBALANCE [Concomitant]
     Active Substance: HYALURONATE SODIUM
     Indication: DRY EYE
     Route: 031

REACTIONS (2)
  - Spondylitic myelopathy [Recovered/Resolved]
  - Spinal column stenosis [Recovered/Resolved]

NARRATIVE: CASE EVENT DATE: 20180625
